FAERS Safety Report 23166858 (Version 1)
Quarter: 2023Q4

REPORT INFORMATION
  Report Type: Spontaneous
  Country: US (occurrence: US)
  Receive Date: 20231109
  Receipt Date: 20231109
  Transmission Date: 20240109
  Serious: No
  Sender: FDA-Public Use
  Company Number: US-002147023-NVSC2023US148819

PATIENT
  Sex: Male
  Weight: 100.7 kg

DRUGS (9)
  1. AMLODIPINE [Suspect]
     Active Substance: AMLODIPINE BESYLATE
     Indication: Psoriasis
     Dosage: UNK
     Route: 065
  2. COSENTYX [Suspect]
     Active Substance: SECUKINUMAB
     Indication: Psoriasis
     Dosage: UNK ROUTE OF ADMIN (FREE TEXT): INJECTION NOT OTHERWISE SPECIFIED
     Route: 065
  3. COSENTYX [Suspect]
     Active Substance: SECUKINUMAB
     Indication: Psoriatic arthropathy
  4. DULOXETINE [Suspect]
     Active Substance: DULOXETINE
     Indication: Psoriatic arthropathy
     Dosage: UNK
     Route: 065
  5. GABAPENTIN [Suspect]
     Active Substance: GABAPENTIN
     Indication: Psoriatic arthropathy
     Dosage: UNK
     Route: 065
  6. HYDROXYCHLOROQUINE [Suspect]
     Active Substance: HYDROXYCHLOROQUINE
     Indication: Psoriatic arthropathy
     Dosage: UNK
     Route: 065
  7. METOPROLOL TARTRATE [Suspect]
     Active Substance: METOPROLOL TARTRATE
     Indication: Psoriasis
     Dosage: UNK
     Route: 065
  8. PENICILLIN G SODIUM [Suspect]
     Active Substance: PENICILLIN G SODIUM
     Indication: Psoriasis
     Dosage: UNK
     Route: 065
  9. TRAMADOL [Suspect]
     Active Substance: TRAMADOL\TRAMADOL HYDROCHLORIDE
     Indication: Psoriatic arthropathy
     Dosage: UNK
     Route: 065

REACTIONS (67)
  - Back pain [Unknown]
  - Photophobia [Unknown]
  - Vitreous floaters [Unknown]
  - Eye disorder [Unknown]
  - Dry eye [Unknown]
  - Vision blurred [Unknown]
  - Ocular hyperaemia [Unknown]
  - Gingival bleeding [Unknown]
  - Breath odour [Unknown]
  - Sneezing [Unknown]
  - Chest discomfort [Unknown]
  - Illness [Unknown]
  - Dyspnoea [Unknown]
  - Dyspnoea exertional [Unknown]
  - Cough [Unknown]
  - Dyspepsia [Unknown]
  - Nausea [Unknown]
  - Myalgia [Unknown]
  - Paraesthesia [Unknown]
  - Hypoaesthesia [Unknown]
  - Musculoskeletal pain [Unknown]
  - Swelling [Unknown]
  - Pain [Unknown]
  - Disorientation [Unknown]
  - General physical health deterioration [Unknown]
  - Dizziness [Unknown]
  - Balance disorder [Unknown]
  - Confusional state [Unknown]
  - Vertigo [Unknown]
  - Depressed mood [Unknown]
  - Restlessness [Unknown]
  - Nervousness [Unknown]
  - Hypersomnia [Unknown]
  - Weight increased [Unknown]
  - Somnolence [Unknown]
  - Tachyphrenia [Unknown]
  - Psychomotor hyperactivity [Unknown]
  - Insomnia [Unknown]
  - Anxiety [Unknown]
  - Dehydration [Unknown]
  - Polydipsia [Unknown]
  - Thirst [Unknown]
  - Temperature intolerance [Unknown]
  - Hyperhidrosis [Unknown]
  - Fatigue [Unknown]
  - Hot flush [Unknown]
  - Asthenia [Unknown]
  - Muscular weakness [Unknown]
  - Libido disorder [Unknown]
  - Hirsutism [Unknown]
  - Hair growth abnormal [Unknown]
  - General physical condition abnormal [Unknown]
  - Musculoskeletal disorder [Unknown]
  - Arthralgia [Unknown]
  - Restless legs syndrome [Unknown]
  - Pyrexia [Unknown]
  - Rash [Unknown]
  - Dry skin [Unknown]
  - Photosensitivity reaction [Unknown]
  - Pruritus [Unknown]
  - Skin exfoliation [Unknown]
  - Diarrhoea [Unknown]
  - Drug ineffective [Unknown]
  - Product use in unapproved indication [Unknown]
  - Night sweats [Unknown]
  - Musculoskeletal stiffness [Unknown]
  - Sinus pain [Unknown]
